FAERS Safety Report 10895761 (Version 1)
Quarter: 2015Q1

REPORT INFORMATION
  Report Type: Spontaneous
  Country: GB (occurrence: GB)
  Receive Date: 20150307
  Receipt Date: 20150307
  Transmission Date: 20150721
  Serious: Yes (Other)
  Sender: FDA-Public Use
  Company Number: GB-ACCORD-028951

PATIENT
  Age: 50 Year
  Sex: Female
  Weight: 50.8 kg

DRUGS (4)
  1. PROPRANOLOL [Concomitant]
     Active Substance: PROPRANOLOL\PROPRANOLOL HYDROCHLORIDE
     Dates: start: 20141118, end: 20150128
  2. AMLODIPINE [Suspect]
     Active Substance: AMLODIPINE BESYLATE
     Indication: PRODUCT USED FOR UNKNOWN INDICATION
     Dates: start: 20150126
  3. RAMIPRIL. [Concomitant]
     Active Substance: RAMIPRIL
     Dates: start: 20141118, end: 20150128
  4. PROGYNOVA [Concomitant]
     Active Substance: ESTRADIOL VALERATE
     Dates: start: 20140916

REACTIONS (2)
  - Gingival bleeding [Unknown]
  - Gingival hyperplasia [Unknown]

NARRATIVE: CASE EVENT DATE: 20150213
